FAERS Safety Report 9292767 (Version 1)
Quarter: 2013Q2

REPORT INFORMATION
  Report Type: Spontaneous
  Country: US (occurrence: None)
  Receive Date: 20130514
  Receipt Date: 20130514
  Transmission Date: 20140414
  Serious: Yes (Other)
  Sender: FDA-Public Use
  Company Number: None

PATIENT
  Age: 73 Year
  Sex: Male
  Weight: 77.11 kg

DRUGS (1)
  1. CEPHALEXIN [Suspect]
     Indication: LYMPHADENOPATHY
     Route: 048
     Dates: start: 20130411, end: 20130424

REACTIONS (9)
  - Urticaria [None]
  - Rash [None]
  - Pruritus [None]
  - Scrotal swelling [None]
  - Penile swelling [None]
  - Swelling face [None]
  - Lip swelling [None]
  - Oedema mouth [None]
  - Pharyngeal oedema [None]
